FAERS Safety Report 5040297-0 (Version None)
Quarter: 2006Q2

REPORT INFORMATION
  Report Type: 
  Country: None (occurrence: None)
  Receive Date: 20060630
  Receipt Date: 20060404
  Transmission Date: 20061013
  Serious: No
  Sender: FDA-Public Use
  Company Number: US-BRISTOL-MYERS SQUIBB COMPANY-13336177

PATIENT
  Age: 64 Year
  Sex: Female
  Weight: 63 kg

DRUGS (6)
  1. ORENCIA [Suspect]
     Route: 042
     Dates: start: 20060324
  2. METHOTREXATE [Concomitant]
  3. CELEBREX [Concomitant]
  4. PREDNISONE [Concomitant]
  5. ZOLOFT [Concomitant]
  6. PRILOSEC [Concomitant]

REACTIONS (1)
  - BRONCHITIS [None]
